FAERS Safety Report 9093492 (Version 1)
Quarter: 2013Q1

REPORT INFORMATION
  Report Type: Spontaneous
  Country: US (occurrence: None)
  Receive Date: 20130213
  Receipt Date: 20130213
  Transmission Date: 20140127
  Serious: Yes (Hospitalization)
  Sender: FDA-Public Use
  Company Number: None

PATIENT
  Age: 48 Year
  Sex: Male
  Weight: 75 kg

DRUGS (1)
  1. STRIBILD [Suspect]
     Indication: INFECTION
     Dates: start: 20121010, end: 20130205

REACTIONS (1)
  - Portal vein thrombosis [None]
